FAERS Safety Report 6444177-5 (Version None)
Quarter: 2009Q4

REPORT INFORMATION
  Report Type: 
  Country: None (occurrence: None)
  Receive Date: 20091116
  Receipt Date: 20091116
  Transmission Date: 20100525
  Serious: Yes (Other)
  Sender: FDA-Public Use
  Company Number: None

PATIENT
  Sex: Male
  Weight: 70.3075 kg

DRUGS (1)
  1. SYMBICORT [Suspect]
     Indication: ASTHMA
     Dosage: 160/4.5 2 TIMES A DAY INHALED LOWER DOSAGE ISSUED IN OCT.
     Route: 055
     Dates: start: 20090801, end: 20091001

REACTIONS (2)
  - SKIN DISCOLOURATION [None]
  - SKIN WARM [None]
